FAERS Safety Report 8893717 (Version 2)
Quarter: 2016Q1

REPORT INFORMATION
  Report Type: Report from Study
  Country: US (occurrence: US)
  Receive Date: 20121107
  Receipt Date: 20160120
  Transmission Date: 20160526
  Serious: No
  Sender: FDA-Public Use
  Company Number: US-AMGEN-USASP2011061838

PATIENT
  Age: 65 Year
  Sex: Male
  Weight: 92.97 kg

DRUGS (1)
  1. ENBREL [Suspect]
     Active Substance: ETANERCEPT
     Indication: RHEUMATOID ARTHRITIS
     Dosage: 50 MG, QWK
     Route: 058
     Dates: start: 20111008

REACTIONS (2)
  - Lymphadenopathy [Unknown]
  - Dizziness [Unknown]

NARRATIVE: CASE EVENT DATE: 20111102
